FAERS Safety Report 11283055 (Version 1)
Quarter: 2015Q3

REPORT INFORMATION
  Report Type: Spontaneous
  Country: US (occurrence: None)
  Receive Date: 20150717
  Receipt Date: 20150717
  Transmission Date: 20151125
  Serious: Yes (Hospitalization)
  Sender: FDA-Public Use
  Company Number: None

PATIENT
  Age: 44 Year
  Sex: Female
  Weight: 78.4 kg

DRUGS (1)
  1. CISPLATIN. [Suspect]
     Active Substance: CISPLATIN
     Dates: end: 20150325

REACTIONS (5)
  - Pain [None]
  - Nausea [None]
  - Pyrexia [None]
  - Necrosis [None]
  - Abscess [None]

NARRATIVE: CASE EVENT DATE: 20150506
